FAERS Safety Report 22367313 (Version 1)
Quarter: 2023Q2

REPORT INFORMATION
  Report Type: Spontaneous
  Country: US (occurrence: US)
  Receive Date: 20230525
  Receipt Date: 20230525
  Transmission Date: 20230722
  Serious: No
  Sender: FDA-Public Use
  Company Number: US-PFIZER INC-202300198733

PATIENT
  Age: 24 Year
  Sex: Male

DRUGS (1)
  1. IBRANCE [Suspect]
     Active Substance: PALBOCICLIB
     Dosage: 125MG TABLET. TAKE 1 TABLET BY MOUTH DAILY FOR 14 DAYS ON, THEN 7 DAYS OFF EACH 21 DAY CYCLE
     Route: 048
     Dates: start: 20230513

REACTIONS (1)
  - White blood cell count decreased [Unknown]

NARRATIVE: CASE EVENT DATE: 20230519
